FAERS Safety Report 18894177 (Version 2)
Quarter: 2021Q3

REPORT INFORMATION
  Report Type: Spontaneous
  Country: GR (occurrence: GR)
  Receive Date: 20210215
  Receipt Date: 20210916
  Transmission Date: 20211014
  Serious: Yes (Hospitalization, Other)
  Sender: FDA-Public Use
  Company Number: GR-AMGEN-GRCSP2021022076

PATIENT
  Age: 76 Year
  Sex: Female

DRUGS (2)
  1. XGEVA [Suspect]
     Active Substance: DENOSUMAB
     Indication: METASTASES TO BONE
     Dosage: 120 MILLIGRAM, QMO
     Route: 065
     Dates: start: 2020
  2. XGEVA [Suspect]
     Active Substance: DENOSUMAB
     Indication: PROPHYLAXIS
     Dosage: 120 MILLIGRAM, QMO
     Route: 065
     Dates: start: 201810, end: 201909

REACTIONS (8)
  - Atypical femur fracture [Recovered/Resolved]
  - Vitamin D decreased [Unknown]
  - Endometrial cancer [Unknown]
  - Post procedural infection [Unknown]
  - Psoriatic arthropathy [Unknown]
  - Arthralgia [Unknown]
  - Diabetes mellitus [Unknown]
  - Rebound effect [Unknown]

NARRATIVE: CASE EVENT DATE: 2019
